FAERS Safety Report 5104920-4 (Version None)
Quarter: 2006Q3

REPORT INFORMATION
  Report Type: 
  Country: None (occurrence: None)
  Receive Date: 20060914
  Receipt Date: 20060912
  Transmission Date: 20061208
  Serious: Yes (Hospitalization)
  Sender: FDA-Public Use
  Company Number: DE-ROCHE-462625

PATIENT
  Age: 66 Year
  Sex: Male

DRUGS (2)
  1. MYCOPHENOLATE MOFETIL [Suspect]
     Route: 048
     Dates: start: 20051215
  2. TACROLIMUS [Suspect]
     Route: 048
     Dates: start: 20051215

REACTIONS (1)
  - LIPOMA [None]
